FAERS Safety Report 7581759-1 (Version None)
Quarter: 2011Q2

REPORT INFORMATION
  Report Type: 
  Country: None (occurrence: None)
  Receive Date: 20110629
  Receipt Date: 20110620
  Transmission Date: 20111010
  Serious: Yes (Hospitalization)
  Sender: FDA-Public Use
  Company Number: BR-ASTRAZENECA-2011SE22716

PATIENT
  Age: 44 Year
  Sex: Female
  Weight: 65 kg

DRUGS (9)
  1. SYMBICORT [Suspect]
     Dosage: 320/9 UG
     Route: 055
     Dates: start: 20080101
  2. SYMBICORT [Suspect]
     Dosage: 320/9 UG AS NEEDED IN RESPONSE TO SYMPTOMS
     Route: 055
     Dates: start: 20080101
  3. ALBUTEROL [Concomitant]
     Indication: ASTHMA
     Route: 055
  4. SYMBICORT [Suspect]
     Dosage: 160/4,5 UG AS NEEDED IN RESPONSE TO SYMPTOMS
     Route: 055
     Dates: start: 20030101, end: 20070101
  5. PANTOPRAZOLE [Concomitant]
     Indication: GASTRITIS
     Route: 048
     Dates: start: 20080101
  6. CORTICORTEN [Concomitant]
     Indication: ASTHMA
     Dosage: AS REQUIRED
     Route: 048
  7. SYMBICORT [Suspect]
     Dosage: 320/9 UG
     Route: 055
     Dates: start: 20070101, end: 20080101
  8. SYMBICORT [Suspect]
     Indication: ASTHMA
     Dosage: 160/4,5 UG
     Route: 055
     Dates: start: 20030101, end: 20070101
  9. SYMBICORT [Suspect]
     Dosage: 320/9 UG AS NEEDED IN RESPONSE TO SYMPTOMS
     Route: 055
     Dates: start: 20070101, end: 20080101

REACTIONS (7)
  - WEIGHT INCREASED [None]
  - GASTRITIS [None]
  - HIATUS HERNIA [None]
  - HERNIA HIATUS REPAIR [None]
  - INCORRECT DOSE ADMINISTERED [None]
  - DRUG DOSE OMISSION [None]
  - DYSPNOEA [None]
